FAERS Safety Report 7903624-X (Version None)
Quarter: 2011Q4

REPORT INFORMATION
  Report Type: 
  Country: None (occurrence: None)
  Receive Date: 20111109
  Receipt Date: 20111103
  Transmission Date: 20120403
  Serious: Yes (Hospitalization)
  Sender: FDA-Public Use
  Company Number: FI-AMGEN-UK282335

PATIENT
  Age: 61 Year
  Sex: Male

DRUGS (2)
  1. PANITUMUMAB [Suspect]
     Indication: SQUAMOUS CELL CARCINOMA
     Dosage: UNK UNK, UNK
     Route: 042
     Dates: start: 20080407, end: 20080519
  2. CISPLATIN [Concomitant]

REACTIONS (2)
  - MUCOSAL INFLAMMATION [None]
  - DEHYDRATION [None]
